FAERS Safety Report 5052693-6 (Version None)
Quarter: 2006Q3

REPORT INFORMATION
  Report Type: 
  Country: None (occurrence: None)
  Receive Date: 20060717
  Receipt Date: 20060706
  Transmission Date: 20061208
  Serious: Yes (Other)
  Sender: FDA-Public Use
  Company Number: US-JNJFOC-20060701105

PATIENT
  Sex: Female

DRUGS (4)
  1. REMICADE [Suspect]
     Indication: CROHN'S DISEASE
     Route: 042
  2. FEMARA [Concomitant]
     Indication: BREAST CANCER
  3. ENTOCORT [Concomitant]
     Indication: CROHN'S DISEASE
  4. XIFAXAN [Concomitant]

REACTIONS (1)
  - SACROILIITIS [None]
